FAERS Safety Report 7952637-0 (Version None)
Quarter: 2011Q4

REPORT INFORMATION
  Report Type: 
  Country: None (occurrence: None)
  Receive Date: 20111201
  Receipt Date: 20111128
  Transmission Date: 20120403
  Serious: No
  Sender: FDA-Public Use
  Company Number: US-PFIZER INC-2011267513

PATIENT
  Sex: Female

DRUGS (9)
  1. FAMOTIDINE [Concomitant]
     Dosage: 20 MG, UNK
  2. HYDROCHLOROTHIAZIDE [Concomitant]
     Dosage: UNK
  3. PREDNISONE [Concomitant]
     Dosage: 20 MG, UNK
  4. RISPERIDONE [Concomitant]
     Dosage: 0.5 MG, UNK
  5. CADUET [Suspect]
     Indication: BLOOD CHOLESTEROL INCREASED
  6. ATENOLOL [Concomitant]
     Dosage: 25 MG, UNK
  7. ENALAPRIL MALEATE [Concomitant]
     Dosage: 10 MG, UNK
  8. CADUET [Suspect]
     Indication: HYPERTENSION
     Dosage: [AMLODIPINE 10 MG] / [ATORVASTATIN 20 MG], UNK
     Dates: end: 20111001
  9. BYSTOLIC [Concomitant]
     Dosage: 10 MG, UNK

REACTIONS (5)
  - HEADACHE [None]
  - DRUG INEFFECTIVE [None]
  - INJURY [None]
  - MALAISE [None]
  - PAIN [None]
